FAERS Safety Report 6105493-X (Version None)
Quarter: 2009Q1

REPORT INFORMATION
  Report Type: 
  Country: None (occurrence: None)
  Receive Date: 20090306
  Receipt Date: 20090227
  Transmission Date: 20090719
  Serious: Yes (Hospitalization)
  Sender: FDA-Public Use
  Company Number: A0771644A

PATIENT
  Age: 59 Year
  Sex: Male
  Weight: 100 kg

DRUGS (11)
  1. AVANDIA [Suspect]
     Indication: DIABETES MELLITUS
     Dosage: 8MG PER DAY
     Route: 048
     Dates: start: 20011002, end: 20070101
  2. GLUCOTROL [Concomitant]
  3. GLUCOVANCE [Concomitant]
  4. VIOXX [Concomitant]
  5. BEXTRA [Concomitant]
  6. PRAVACHOL [Concomitant]
  7. ZOLOFT [Concomitant]
  8. LEXAPRO [Concomitant]
  9. ADVAIR HFA [Concomitant]
  10. SPIRIVA [Concomitant]
  11. MUPIROCIN [Concomitant]

REACTIONS (2)
  - CARDIAC FAILURE CONGESTIVE [None]
  - INFARCTION [None]
